FAERS Safety Report 16638030 (Version 1)
Quarter: 2019Q3

REPORT INFORMATION
  Report Type: Report from Study
  Country: US (occurrence: US)
  Receive Date: 20190726
  Receipt Date: 20190726
  Transmission Date: 20191004
  Serious: Yes (Hospitalization, Other)
  Sender: FDA-Public Use
  Company Number: US-JNJFOC-20190606414

PATIENT
  Age: 65 Year
  Sex: Female
  Weight: 42 kg

DRUGS (25)
  1. CYANOCOBALAMIN. [Concomitant]
     Active Substance: CYANOCOBALAMIN
  2. HYZAAR [Concomitant]
     Active Substance: HYDROCHLOROTHIAZIDE\LOSARTAN POTASSIUM
  3. PANTOPRAZOLE SODIUM. [Concomitant]
     Active Substance: PANTOPRAZOLE SODIUM
  4. POTASSIUM CHLORIDE. [Concomitant]
     Active Substance: POTASSIUM CHLORIDE
  5. AMLODIPINE BESYLATE. [Concomitant]
     Active Substance: AMLODIPINE BESYLATE
     Route: 048
  6. AZITHROMYCIN ANHYDROUS. [Concomitant]
     Active Substance: AZITHROMYCIN ANHYDROUS
  7. IMBRUVICA [Suspect]
     Active Substance: IBRUTINIB
     Route: 048
     Dates: start: 201811, end: 201906
  8. HYDROCHLOROTHIAZIDE. [Concomitant]
     Active Substance: HYDROCHLOROTHIAZIDE
     Route: 048
  9. LORATADINE. [Concomitant]
     Active Substance: LORATADINE
     Route: 048
  10. CARAFATE [Concomitant]
     Active Substance: SUCRALFATE
  11. IMBRUVICA [Suspect]
     Active Substance: IBRUTINIB
     Route: 048
     Dates: start: 20190608
  12. INFLUENZA VACCINE INACT SPLIT VIRION 4V [Concomitant]
  13. MYCELEX [Concomitant]
     Active Substance: CLOTRIMAZOLE
  14. FISH OIL W/TOCOPHEROL [Concomitant]
     Active Substance: FISH OIL\TOCOPHEROL
  15. IPRATROPIUM BROMIDE W/SALBUTAMOL SULFATE [Concomitant]
     Active Substance: ALBUTEROL SULFATE\IPRATROPIUM BROMIDE
  16. ONDANSETRON HCL [Concomitant]
     Active Substance: ONDANSETRON HYDROCHLORIDE
     Route: 042
  17. IMBRUVICA [Suspect]
     Active Substance: IBRUTINIB
     Indication: CHRONIC LYMPHOCYTIC LEUKAEMIA
     Route: 048
     Dates: start: 20190511
  18. ALLOPURINOL. [Concomitant]
     Active Substance: ALLOPURINOL
     Route: 048
  19. HEPARIN LOCK FLUSH [Concomitant]
     Active Substance: HEPARIN SODIUM
  20. FOLIC ACID. [Concomitant]
     Active Substance: FOLIC ACID
     Route: 048
  21. PROCHLORPERAZINE MALEATE. [Concomitant]
     Active Substance: PROCHLORPERAZINE MALEATE
  22. DIPHENHYDRAMINE HCL [Concomitant]
     Active Substance: DIPHENHYDRAMINE HYDROCHLORIDE
  23. POTASSIUM CHLORIDE. [Concomitant]
     Active Substance: POTASSIUM CHLORIDE
  24. FLUCONAZOLE. [Concomitant]
     Active Substance: FLUCONAZOLE
  25. HEPARIN SODIUM. [Concomitant]
     Active Substance: HEPARIN SODIUM
     Dosage: 5000 UNIT, UNK

REACTIONS (35)
  - White blood cell count abnormal [Unknown]
  - Decreased appetite [Unknown]
  - Fungal sepsis [Not Recovered/Not Resolved]
  - Feeling abnormal [Unknown]
  - Bone pain [Unknown]
  - Occult blood positive [Recovered/Resolved]
  - Haptoglobin abnormal [Unknown]
  - Weight decreased [Unknown]
  - Fatigue [Not Recovered/Not Resolved]
  - Neck pain [Unknown]
  - Gastric ulcer [Recovered/Resolved]
  - Influenza like illness [Unknown]
  - Iron deficiency [Unknown]
  - Blood folate abnormal [Unknown]
  - Reticulocyte count decreased [Unknown]
  - Blood creatinine abnormal [Unknown]
  - Disorientation [Not Recovered/Not Resolved]
  - Nausea [Unknown]
  - Bedridden [Unknown]
  - Vitamin B12 deficiency [Unknown]
  - Blood erythropoietin abnormal [Unknown]
  - Gastritis [Unknown]
  - Large intestine polyp [Unknown]
  - Anaemia [Recovering/Resolving]
  - Asthenia [Unknown]
  - Pulmonary cavitation [Unknown]
  - Pain [Recovered/Resolved]
  - Blood lactate dehydrogenase abnormal [Unknown]
  - Platelet count abnormal [Unknown]
  - Meningitis fungal [Not Recovered/Not Resolved]
  - Liver function test abnormal [Unknown]
  - Hypercalcaemia [Recovered/Resolved]
  - Arthralgia [Recovered/Resolved]
  - Malaise [Unknown]
  - Back pain [Unknown]

NARRATIVE: CASE EVENT DATE: 2018
